FAERS Safety Report 7249954-9 (Version None)
Quarter: 2011Q1

REPORT INFORMATION
  Report Type: 
  Country: None (occurrence: None)
  Receive Date: 20110128
  Receipt Date: 20100921
  Transmission Date: 20110831
  Serious: No
  Sender: FDA-Public Use
  Company Number: A0888480A

PATIENT
  Sex: Female

DRUGS (3)
  1. WELLBUTRIN XL [Suspect]
     Dosage: 300MG PER DAY
     Route: 065
  2. BUPROPION HCL [Suspect]
     Dosage: 150MG UNKNOWN
     Route: 065
  3. WELLBUTRIN [Suspect]
     Dosage: 75MG UNKNOWN
     Route: 065

REACTIONS (3)
  - RASH [None]
  - NAUSEA [None]
  - PRURITUS [None]
